FAERS Safety Report 9203104 (Version 1)
Quarter: 2013Q2

REPORT INFORMATION
  Report Type: Spontaneous
  Country: US (occurrence: US)
  Receive Date: 20130402
  Receipt Date: 20130402
  Transmission Date: 20140414
  Serious: No
  Sender: FDA-Public Use
  Company Number: US-009507513-1303USA013870

PATIENT
  Age: 36 Year
  Sex: Female
  Weight: 64.85 kg

DRUGS (2)
  1. NEXPLANON [Suspect]
     Indication: CONTRACEPTION
     Dosage: 1 ROD 3 YEARS
     Route: 059
     Dates: start: 20120817
  2. PROGESTERONE [Concomitant]

REACTIONS (2)
  - Metrorrhagia [Not Recovered/Not Resolved]
  - Device dislocation [Unknown]
